FAERS Safety Report 7541598-4 (Version None)
Quarter: 2011Q2

REPORT INFORMATION
  Report Type: 
  Country: None (occurrence: None)
  Receive Date: 20110613
  Receipt Date: 20110607
  Transmission Date: 20111010
  Serious: Yes (Death)
  Sender: FDA-Public Use
  Company Number: US-ELI_LILLY_AND_COMPANY-US201106002258

PATIENT
  Age: 59 Year
  Sex: Male

DRUGS (5)
  1. ZYPREXA [Suspect]
     Dosage: 60 MG, QD
  2. VALIUM [Concomitant]
     Dosage: UNK, TID
  3. ZYPREXA [Suspect]
     Indication: SCHIZOPHRENIA
     Dosage: 40 MG, QD
  4. CYMBALTA [Suspect]
     Dosage: 90 MG, EACH MORNING
  5. CYMBALTA [Suspect]
     Dosage: 60 MG, EACH EVENING

REACTIONS (3)
  - INSOMNIA [None]
  - MYOCARDIAL INFARCTION [None]
  - OVERDOSE [None]
